FAERS Safety Report 5955380-2 (Version None)
Quarter: 2008Q4

REPORT INFORMATION
  Report Type: 
  Country: None (occurrence: None)
  Receive Date: 20081117
  Receipt Date: 20081113
  Transmission Date: 20090506
  Serious: Yes (Hospitalization)
  Sender: FDA-Public Use
  Company Number: US-ASTRAZENECA-2008UW25478

PATIENT
  Age: 25 Year
  Sex: Male

DRUGS (1)
  1. PULMICORT RESPULES [Suspect]
     Indication: ASTHMA
     Route: 055
     Dates: start: 20081106

REACTIONS (3)
  - CARBON DIOXIDE INCREASED [None]
  - OXYGEN SATURATION DECREASED [None]
  - TONGUE PARALYSIS [None]
